FAERS Safety Report 4984777-2 (Version None)
Quarter: 2006Q2

REPORT INFORMATION
  Report Type: 
  Country: None (occurrence: None)
  Receive Date: 20060427
  Receipt Date: 20060418
  Transmission Date: 20061013
  Serious: Yes (Other)
  Sender: FDA-Public Use
  Company Number: 2006GB00647

PATIENT
  Age: 57 Year
  Sex: Female
  Weight: 75 kg

DRUGS (9)
  1. NEXIUM [Suspect]
     Indication: GASTROOESOPHAGEAL REFLUX DISEASE
     Route: 048
     Dates: start: 20060314, end: 20060330
  2. AMITRIPTYLINE HCL [Concomitant]
     Dosage: 25 - 50 MG OD
     Route: 048
     Dates: start: 19990101
  3. DOMPERIDONE [Concomitant]
     Indication: HIATUS HERNIA
     Dosage: 10 - 20 MG
     Route: 048
     Dates: start: 20030101
  4. ADALAT [Concomitant]
     Indication: HYPERTENSION
     Route: 048
     Dates: start: 20030101
  5. SERETIDE [Concomitant]
     Route: 055
  6. PANTOPRAZOLE [Concomitant]
     Route: 065
  7. GTN-S [Concomitant]
     Route: 065
  8. TRAMADOL HCL [Concomitant]
     Route: 065
  9. CARBAMAZEPINE [Concomitant]
     Route: 048

REACTIONS (2)
  - CONFUSIONAL STATE [None]
  - HALLUCINATION, VISUAL [None]
